FAERS Safety Report 7949582-3 (Version None)
Quarter: 2011Q4

REPORT INFORMATION
  Report Type: 
  Country: None (occurrence: None)
  Receive Date: 20111130
  Receipt Date: 20111121
  Transmission Date: 20120403
  Serious: Yes (Hospitalization, Disabling, Other)
  Sender: FDA-Public Use
  Company Number: US-CELGENEUS-163-C5013-11113094

PATIENT
  Sex: Male
  Weight: 63.8 kg

DRUGS (10)
  1. CYTOXAN [Concomitant]
     Indication: NON-HODGKIN'S LYMPHOMA
     Route: 065
  2. BENDAMUSTINE [Concomitant]
     Route: 065
  3. BENDAMUSTINE [Concomitant]
     Route: 065
  4. RITUXAN [Concomitant]
     Route: 065
  5. BENDAMUSTINE [Concomitant]
     Indication: NON-HODGKIN'S LYMPHOMA
     Route: 065
  6. RITUXAN [Concomitant]
     Indication: NON-HODGKIN'S LYMPHOMA
     Route: 065
  7. RITUXAN [Concomitant]
     Route: 065
  8. LENALIDOMIDE [Suspect]
     Indication: NON-HODGKIN'S LYMPHOMA
     Route: 048
     Dates: end: 20080107
  9. VINCRISTINE [Concomitant]
     Indication: NON-HODGKIN'S LYMPHOMA
     Route: 065
  10. VELCADE [Concomitant]
     Indication: NON-HODGKIN'S LYMPHOMA
     Route: 065

REACTIONS (1)
  - OESOPHAGEAL CARCINOMA [None]
